FAERS Safety Report 8933987 (Version 1)
Quarter: 2012Q4

REPORT INFORMATION
  Report Type: 
  Country: US (occurrence: US)
  Receive Date: 20121129
  Receipt Date: 20121129
  Transmission Date: 20130627
  Serious: No
  Sender: FDA-Public Use
  Company Number: US-BAYER-2012-124723

PATIENT
  Age: 71 Year
  Sex: Female

DRUGS (3)
  1. AVELOX [Suspect]
     Indication: INFECTION
     Dosage: 400 mg, QD
     Dates: start: 20121119
  2. SYNTHROID [Concomitant]
     Dosage: UNK
  3. BENICAR [Concomitant]
     Dosage: UNK

REACTIONS (2)
  - Nausea [None]
  - Dizziness [None]
